FAERS Safety Report 4518644-5 (Version None)
Quarter: 2004Q4

REPORT INFORMATION
  Report Type: 
  Country: None (occurrence: None)
  Receive Date: 20041101
  Receipt Date: 20031216
  Transmission Date: 20050328
  Serious: Yes (Hospitalization)
  Sender: FDA-Public Use
  Company Number: 200320513US

PATIENT
  Sex: 0

DRUGS (6)
  1. ANZEMET [Suspect]
     Indication: PROPHYLAXIS OF NAUSEA AND VOMITING
     Dosage: 100 MG ONE IV
     Route: 042
     Dates: start: 20031201, end: 20031201
  2. DOXORUBICIN (ADRIAMYCIN) [Concomitant]
  3. CYTOXAN [Concomitant]
  4. FLUOROURACIL [Concomitant]
  5. DEXAMETHASONE [Concomitant]
  6. REGLAN [Concomitant]

REACTIONS (4)
  - ABDOMINAL PAIN [None]
  - BLOOD AMYLASE INCREASED [None]
  - NAUSEA [None]
  - PANCREATITIS [None]
